FAERS Safety Report 5102082-0 (Version None)
Quarter: 2006Q3

REPORT INFORMATION
  Report Type: 
  Country: None (occurrence: None)
  Receive Date: 20060911
  Receipt Date: 20060823
  Transmission Date: 20061208
  Serious: Yes (Death, Hospitalization)
  Sender: FDA-Public Use
  Company Number: FR-GILEAD-2006-0010102

PATIENT
  Age: 18 Month
  Sex: Female
  Weight: 10 kg

DRUGS (9)
  1. DAUNOXOME [Suspect]
     Indication: ACUTE LEUKAEMIA
     Route: 042
     Dates: start: 20060525, end: 20060525
  2. ARACYTINE [Suspect]
     Indication: ACUTE MYELOID LEUKAEMIA
     Route: 042
     Dates: start: 20060524, end: 20060524
  3. ZOPHREN [Suspect]
     Indication: NAUSEA
     Route: 048
     Dates: start: 20060523
  4. ZOPHREN [Suspect]
     Indication: VOMITING
  5. FASTURTEC [Suspect]
     Indication: TUMOUR LYSIS SYNDROME
     Route: 042
     Dates: start: 20060523, end: 20060526
  6. FLUDARABINE [Suspect]
     Indication: ACUTE MYELOID LEUKAEMIA
     Route: 042
     Dates: start: 20060525, end: 20060529
  7. GRANOCYTE [Suspect]
     Indication: AGRANULOCYTOSIS
     Route: 042
     Dates: start: 20060524, end: 20060529
  8. PLITICAN [Concomitant]
     Dates: start: 20060524
  9. BACTRIM [Concomitant]
     Indication: ANTIBIOTIC PROPHYLAXIS
     Dates: start: 20060524

REACTIONS (9)
  - ACCIDENTAL OVERDOSE [None]
  - APLASIA [None]
  - CARDIAC ARREST [None]
  - CHILLS [None]
  - DRUG ADMINISTRATION ERROR [None]
  - PAIN [None]
  - PROSTRATION [None]
  - RESPIRATORY DISTRESS [None]
  - VOMITING [None]
